FAERS Safety Report 9032531 (Version 1)
Quarter: 2013Q1

REPORT INFORMATION
  Report Type: Spontaneous
  Country: NL (occurrence: None)
  Receive Date: 20130108
  Receipt Date: 20130108
  Transmission Date: 20140127
  Serious: Yes (Hospitalization)
  Sender: FDA-Public Use
  Company Number: 2012AP004446

PATIENT
  Age: 70 Year
  Sex: Male

DRUGS (2)
  1. PANTOPRAZOLE (PANTOPRAZOLE) [Suspect]
     Indication: ABDOMINAL PAIN UPPER
     Dates: start: 201212
  2. CAPTOPRIL TABLETS (CAPTOPRIL) [Suspect]
     Indication: PRODUCT USED FOR UNKNOWN INDICATION
     Dates: start: 2010

REACTIONS (5)
  - Dyspnoea [None]
  - Oedema [None]
  - Chest discomfort [None]
  - Drug interaction [None]
  - Angioedema [None]
